FAERS Safety Report 7395178-4 (Version None)
Quarter: 2011Q2

REPORT INFORMATION
  Report Type: 
  Country: None (occurrence: None)
  Receive Date: 20110405
  Receipt Date: 20110328
  Transmission Date: 20111010
  Serious: Yes (Death)
  Sender: FDA-Public Use
  Company Number: US-GENZYME-CLOF-1001531

PATIENT

DRUGS (4)
  1. VP-16 [Suspect]
     Indication: ACUTE LEUKAEMIA
     Dosage: ON DAYS 1-5
     Route: 065
     Dates: start: 20110301, end: 20110301
  2. CYTOXAN [Suspect]
     Indication: ACUTE LEUKAEMIA
     Dosage: ON DAYS 1-5
     Route: 065
     Dates: start: 20110301, end: 20110301
  3. CLOLAR [Suspect]
     Indication: ACUTE LEUKAEMIA
     Dosage: ON DAYS 1-5
     Route: 042
     Dates: start: 20110301, end: 20110301
  4. METHOTREXATE [Suspect]
     Indication: ACUTE LEUKAEMIA
     Dosage: UNK
     Route: 037
     Dates: start: 20110301, end: 20110301

REACTIONS (2)
  - DEATH [None]
  - FLUID RETENTION [None]
